FAERS Safety Report 8560280-8 (Version None)
Quarter: 2012Q3

REPORT INFORMATION
  Report Type: 
  Country: None (occurrence: None)
  Receive Date: 20120727
  Receipt Date: 20120727
  Transmission Date: 20120928
  Serious: Yes (Hospitalization)
  Sender: FDA-Public Use
  Company Number: None

PATIENT
  Age: 51 Year
  Sex: Male
  Weight: 70 kg

DRUGS (4)
  1. OLANZAPINE [Suspect]
     Indication: DEPRESSION
     Dosage: 15MG DAILY PO RECENT DOSE CHANGE
     Route: 048
  2. BUPRION [Concomitant]
  3. RISPERDAL [Concomitant]
  4. OLANZAPINE [Suspect]
     Indication: DEPRESSION
     Dosage: 10MG DAILY PO RECENT DOSE CHANGE
     Route: 048

REACTIONS (3)
  - ENCEPHALOPATHY [None]
  - ACCIDENTAL OVERDOSE [None]
  - DEPRESSED LEVEL OF CONSCIOUSNESS [None]
